FAERS Safety Report 9351829 (Version 1)
Quarter: 2013Q2

REPORT INFORMATION
  Report Type: Spontaneous
  Country: US (occurrence: US)
  Receive Date: 20130617
  Receipt Date: 20130617
  Transmission Date: 20140414
  Serious: No
  Sender: FDA-Public Use
  Company Number: US-009507513-1306USA005921

PATIENT
  Sex: Female

DRUGS (2)
  1. ZOCOR [Suspect]
     Dosage: 40 MG, QD
     Route: 048
  2. ZOCOR [Suspect]
     Dosage: 60 MG, QD
     Route: 048

REACTIONS (1)
  - Drug ineffective [Unknown]
